FAERS Safety Report 20770217 (Version 3)
Quarter: 2022Q2

REPORT INFORMATION
  Report Type: Report from Study
  Country: US (occurrence: US)
  Receive Date: 20220429
  Receipt Date: 20220615
  Transmission Date: 20220720
  Serious: No
  Sender: FDA-Public Use
  Company Number: US-BIOVITRUM-2022US02615

PATIENT
  Sex: Female

DRUGS (4)
  1. KINERET [Suspect]
     Active Substance: ANAKINRA
     Indication: Product used for unknown indication
     Route: 058
  2. ALLEGRA [Concomitant]
     Active Substance: FEXOFENADINE HYDROCHLORIDE
  3. PRAMIPEXOLE [Concomitant]
     Active Substance: PRAMIPEXOLE
  4. MAGNESIUM [Concomitant]
     Active Substance: MAGNESIUM

REACTIONS (5)
  - Sinusitis [Unknown]
  - Arthralgia [Unknown]
  - Injection site pain [Unknown]
  - Injection site erythema [Unknown]
  - Injection site pruritus [Recovered/Resolved]
